FAERS Safety Report 10443943 (Version 1)
Quarter: 2014Q3

REPORT INFORMATION
  Report Type: Spontaneous
  Country: US (occurrence: US)
  Receive Date: 20140910
  Receipt Date: 20140910
  Transmission Date: 20150326
  Serious: No
  Sender: FDA-Public Use
  Company Number: US-TARO-2014P1000060

PATIENT
  Sex: Female
  Weight: 83.46 kg

DRUGS (13)
  1. GARLIC. [Concomitant]
     Active Substance: GARLIC
  2. FUROSEMIDE. [Concomitant]
     Active Substance: FUROSEMIDE
  3. FENOFIBRATE. [Concomitant]
     Active Substance: FENOFIBRATE
  4. CALCIUM MAGNESIUM [Concomitant]
  5. LANTUS INSULIN [Concomitant]
  6. BABY ASPIRIN [Concomitant]
     Active Substance: ASPIRIN
  7. METFORMIN [Concomitant]
     Active Substance: METFORMIN HYDROCHLORIDE
  8. ONE A DAY 50 PLUS VITAMIN [Concomitant]
  9. WARFARIN SODIUM TABLETS USP 1MG [Suspect]
     Active Substance: WARFARIN SODIUM
     Indication: ATRIAL FIBRILLATION
     Route: 048
     Dates: start: 2011
  10. OCUVITE [Concomitant]
     Active Substance: VITAMINS
  11. TYLENOL [Concomitant]
     Active Substance: ACETAMINOPHEN
     Dosage: PRN
  12. WARFARIN SODIUM TABLETS USP 4MG [Suspect]
     Active Substance: WARFARIN SODIUM
     Indication: ATRIAL FIBRILLATION
     Route: 048
     Dates: start: 2011
  13. FUTUREBIOTIC [Concomitant]

REACTIONS (9)
  - Toothache [Recovering/Resolving]
  - Fall [Unknown]
  - Dehydration [Unknown]
  - Headache [Unknown]
  - Tremor [Unknown]
  - Neck pain [Not Recovered/Not Resolved]
  - Nausea [Unknown]
  - Toxicity to various agents [Not Recovered/Not Resolved]
  - Emotional disorder [Unknown]
